FAERS Safety Report 9594399 (Version 1)
Quarter: 2013Q3

REPORT INFORMATION
  Report Type: Spontaneous
  Country: US (occurrence: None)
  Receive Date: 20130923
  Receipt Date: 20130923
  Transmission Date: 20140515
  Serious: Yes (Hospitalization)
  Sender: FDA-Public Use
  Company Number: 2013STPI000124

PATIENT
  Age: 75 Year
  Sex: Female
  Weight: 62.6 kg

DRUGS (2)
  1. MATULANE [Suspect]
     Indication: LYMPHOMA
     Dates: start: 20130321, end: 201304
  2. CHEMOTHERAPEUTICS [Suspect]
     Indication: LYMPHOMA
     Dates: start: 20130321, end: 201304

REACTIONS (1)
  - Immunosuppression [None]
